FAERS Safety Report 15585000 (Version 1)
Quarter: 2018Q4

REPORT INFORMATION
  Report Type: Report from Study
  Country: CA (occurrence: CA)
  Receive Date: 20181102
  Receipt Date: 20181102
  Transmission Date: 20190205
  Serious: Yes (Other)
  Sender: FDA-Public Use
  Company Number: CA-SHIRE-CA201840950

PATIENT

DRUGS (1)
  1. HUMAN NORMAL IMMUNOGLOBULIN; LIQUID 20 [Suspect]
     Active Substance: HUMAN IMMUNOGLOBULIN G
     Indication: PRODUCT USED FOR UNKNOWN INDICATION
     Dosage: 10 G, 1X/WEEK
     Route: 058
     Dates: start: 20180907

REACTIONS (8)
  - Sinusitis [Unknown]
  - Abdominal discomfort [Unknown]
  - Oral mucosal eruption [Unknown]
  - Rhinorrhoea [Unknown]
  - Oral infection [Unknown]
  - Infection [Unknown]
  - Hyperhidrosis [Unknown]
  - Fatigue [Unknown]
